FAERS Safety Report 4555322-0 (Version None)
Quarter: 2004Q4

REPORT INFORMATION
  Report Type: 
  Country: None (occurrence: None)
  Receive Date: 20041223
  Receipt Date: 20041201
  Transmission Date: 20050328
  Serious: No
  Sender: FDA-Public Use
  Company Number: US-JNJFOC-20041007860

PATIENT
  Age: 52 Year
  Sex: Female

DRUGS (2)
  1. ERTACZO (SERTACONAZOLE NITRATE) CREAM [Suspect]
     Indication: TINEA PEDIS
     Dosage: TOPICAL
     Route: 061
     Dates: start: 20041018, end: 20041023
  2. ACTINOL (CYPROHEPTADINE HYDROCHLORIDE) [Concomitant]

REACTIONS (1)
  - CONDITION AGGRAVATED [None]
